FAERS Safety Report 20297072 (Version 1)
Quarter: 2022Q1

REPORT INFORMATION
  Report Type: Spontaneous
  Country: DE (occurrence: DE)
  Receive Date: 20220105
  Receipt Date: 20220105
  Transmission Date: 20220423
  Serious: Yes (Hospitalization)
  Sender: FDA-Public Use
  Company Number: DE-ADRED-07644-01

PATIENT
  Age: 61 Year
  Sex: Female

DRUGS (7)
  1. PREDNISOLONE [Suspect]
     Active Substance: PREDNISOLONE
     Dosage: 20 MG, 1-0.5-1-0
     Route: 065
  2. CANDESARTAN [Concomitant]
     Active Substance: CANDESARTAN
     Dosage: .5 DOSAGE FORMS DAILY; 16 MG, 0.5-0-0-0
  3. FENTANYL [Concomitant]
     Active Substance: FENTANYL
     Dosage: 50 UG, SCHEME, TRANSDERMAL PATCH
  4. NEBIVOLOL [Concomitant]
     Active Substance: NEBIVOLOL
     Dosage: 5 MG, 1-0-0.5-0
  5. METAMIZOL [Concomitant]
     Active Substance: METAMIZOLE SODIUM
     Dosage: 1500 MILLIGRAM DAILY; 1-1-1-0
  6. IPRATROPIUM BROMIDE [Concomitant]
     Active Substance: IPRATROPIUM BROMIDE
     Dosage: NEED, METERED DOSE INHALER
  7. ALBUTEROL [Concomitant]
     Active Substance: ALBUTEROL
     Dosage: SCHEME, METERED DOSE INHALER

REACTIONS (7)
  - Hypokalaemia [Unknown]
  - Systemic infection [Unknown]
  - Pyrexia [Unknown]
  - Dyspnoea [Unknown]
  - Tachycardia [Unknown]
  - Coronavirus infection [Unknown]
  - General physical health deterioration [Unknown]
